FAERS Safety Report 7602132-3 (Version None)
Quarter: 2011Q3

REPORT INFORMATION
  Report Type: 
  Country: None (occurrence: None)
  Receive Date: 20110711
  Receipt Date: 20110704
  Transmission Date: 20111222
  Serious: Yes (Disabling, Other)
  Sender: FDA-Public Use
  Company Number: PHHO2011FR11430

PATIENT
  Sex: Female
  Weight: 64 kg

DRUGS (4)
  1. NEURONTIN [Concomitant]
  2. LEVOCARNIL [Concomitant]
  3. DROSPIRENONE AND ETHINYL ESTRADIOL [Concomitant]
  4. AFINITOR [Suspect]
     Indication: NEUROFIBROMATOSIS
     Dosage: 5 MG, UNK
     Route: 048
     Dates: start: 20110608, end: 20110623

REACTIONS (3)
  - APHTHOUS STOMATITIS [None]
  - WEIGHT DECREASED [None]
  - APHAGIA [None]
